FAERS Safety Report 8121947-9 (Version None)
Quarter: 2012Q1

REPORT INFORMATION
  Report Type: 
  Country: None (occurrence: None)
  Receive Date: 20120207
  Receipt Date: 20120207
  Transmission Date: 20120608
  Serious: Yes (Other)
  Sender: FDA-Public Use
  Company Number: None

PATIENT
  Age: 42 Year
  Sex: Female

DRUGS (8)
  1. VELCADE [Concomitant]
  2. REVLIMID [Suspect]
     Indication: MULTIPLE MYELOMA
     Dosage: 25MG QDX21D/28D ORALLY
     Route: 048
  3. AMBIEN [Concomitant]
  4. AREDIA [Concomitant]
  5. ZOVIRAX [Concomitant]
  6. PRILOSEC [Concomitant]
  7. DECADRON [Concomitant]
  8. VICODIN [Concomitant]

REACTIONS (4)
  - HAIR COLOUR CHANGES [None]
  - PRURITUS [None]
  - HEPATIC ENZYME INCREASED [None]
  - ERYTHEMA [None]
